FAERS Safety Report 9240430 (Version 2)
Quarter: 2015Q1

REPORT INFORMATION
  Report Type: Spontaneous
  Country: US (occurrence: None)
  Receive Date: 20130417
  Receipt Date: 20150202
  Transmission Date: 20150721
  Serious: Yes (Other)
  Sender: FDA-Public Use
  Company Number: TPA2013A02777

PATIENT
  Age: 83 Year
  Sex: Male
  Weight: 72.6 kg

DRUGS (4)
  1. DEXILANT [Suspect]
     Active Substance: DEXLANSOPRAZOLE
     Indication: GASTROOESOPHAGEAL REFLUX DISEASE
     Dosage: 60MG, 1 IN 1 D, PER ORAL
     Route: 048
     Dates: start: 2009
  2. HYDROCODONE/APAP 10/325 (VICODIN) [Concomitant]
  3. DIAZEPAM. [Concomitant]
     Active Substance: DIAZEPAM
  4. LEVOTHYROXINE [Concomitant]
     Active Substance: LEVOTHYROXINE

REACTIONS (11)
  - Gait disturbance [None]
  - Weight decreased [None]
  - Muscular weakness [None]
  - Balance disorder [None]
  - Back pain [None]
  - Dysphonia [None]
  - Heart rate irregular [None]
  - Oropharyngeal pain [None]
  - Coronary artery occlusion [None]
  - Pain in extremity [None]
  - Condition aggravated [None]

NARRATIVE: CASE EVENT DATE: 2010
